FAERS Safety Report 7898578-9 (Version None)
Quarter: 2011Q4

REPORT INFORMATION
  Report Type: 
  Country: None (occurrence: None)
  Receive Date: 20111107
  Receipt Date: 20111103
  Transmission Date: 20120403
  Serious: Yes (Life-Threatening, Hospitalization, Disabling)
  Sender: FDA-Public Use
  Company Number: US-ABBOTT-11P-163-0870910-00

PATIENT
  Sex: Female

DRUGS (4)
  1. HUMIRA [Suspect]
     Indication: PSORIASIS
     Dosage: ONCE
     Route: 058
     Dates: start: 20080708, end: 20080708
  2. HUMIRA [Suspect]
     Route: 058
     Dates: end: 20110807
  3. ASPIRIN [Concomitant]
     Indication: PSORIASIS
     Dosage: 10-15MG QD
     Dates: start: 20050920
  4. TACLONEX [Concomitant]
     Indication: PSORIASIS
     Dosage: 2-10GRAMS QD UP TO 4 WKS PRN
     Dates: start: 20090323

REACTIONS (6)
  - PAIN IN EXTREMITY [None]
  - HYPOAESTHESIA [None]
  - MILLER FISHER SYNDROME [None]
  - BACK PAIN [None]
  - PAIN [None]
  - GUILLAIN-BARRE SYNDROME [None]
